FAERS Safety Report 9373474 (Version 1)
Quarter: 2013Q2

REPORT INFORMATION
  Report Type: Spontaneous
  Country: US (occurrence: US)
  Receive Date: 20130627
  Receipt Date: 20130627
  Transmission Date: 20140414
  Serious: Yes (Hospitalization)
  Sender: FDA-Public Use
  Company Number: US-MYLANLABS-2013S1013788

PATIENT
  Sex: Male

DRUGS (4)
  1. FENTANYL TRANSDERMAL SYSTEM [Suspect]
     Indication: PAIN
     Route: 062
  2. PHENERGAN [Suspect]
     Indication: NAUSEA
     Dates: start: 2012, end: 2012
  3. LORTAB [Concomitant]
     Dosage: LORTAB-10
     Dates: start: 2005
  4. SOMA [Concomitant]
     Dates: start: 2005

REACTIONS (4)
  - Chest pain [Recovered/Resolved]
  - Nausea [Recovered/Resolved]
  - Muscle twitching [Recovered/Resolved]
  - Drug interaction [Recovered/Resolved]
